FAERS Safety Report 4825829-7 (Version None)
Quarter: 2005Q4

REPORT INFORMATION
  Report Type: 
  Country: None (occurrence: None)
  Receive Date: 20051111
  Receipt Date: 20051104
  Transmission Date: 20060501
  Serious: Yes (Hospitalization, Other)
  Sender: FDA-Public Use
  Company Number: GB-JNJFOC-20051101477

PATIENT
  Sex: Female
  Weight: 104 kg

DRUGS (10)
  1. REMICADE [Suspect]
     Indication: RHEUMATOID ARTHRITIS
     Route: 042
  2. METHOTREXATE [Concomitant]
  3. PREDNISOLONE [Concomitant]
  4. ATENOLOL [Concomitant]
  5. BECLOMETHASONE DIPROPIONATE [Concomitant]
  6. DIHYDROCODEINE [Concomitant]
  7. FOLIC ACID [Concomitant]
  8. HRT [Concomitant]
  9. LISINOPRIL [Concomitant]
  10. SALBUTAMOL [Concomitant]

REACTIONS (2)
  - DIARRHOEA [None]
  - RECTAL HAEMORRHAGE [None]
